FAERS Safety Report 8816980 (Version 1)
Quarter: 2012Q4

REPORT INFORMATION
  Report Type: Spontaneous
  Country: US (occurrence: None)
  Receive Date: 20121003
  Receipt Date: 20121003
  Transmission Date: 20130627
  Serious: Yes (Death, Life-Threatening, Hospitalization)
  Sender: FDA-Public Use
  Company Number: None

PATIENT
  Age: 76 Year
  Sex: Male
  Weight: 83.91 kg

DRUGS (1)
  1. ZYTIGA [Suspect]
     Indication: MALIGNANT NEOPLASM OF  PROSTATE
     Dosage: 1000 mg daily oral
     Route: 048
     Dates: start: 20120706, end: 20120806

REACTIONS (1)
  - Cerebral thrombosis [None]
